FAERS Safety Report 9176167 (Version 2)
Quarter: 2013Q2

REPORT INFORMATION
  Report Type: Report from Study
  Country: BR (occurrence: BR)
  Receive Date: 20130321
  Receipt Date: 20130516
  Transmission Date: 20140414
  Serious: Yes (Hospitalization)
  Sender: FDA-Public Use
  Company Number: PHHO2013BR003763

PATIENT
  Age: 62 Year
  Sex: Male
  Weight: 64.6 kg

DRUGS (16)
  1. BLINDED GP2013 [Suspect]
     Indication: NON-HODGKIN^S LYMPHOMA
     Dosage: CODE NOT BROKEN
     Route: 042
     Dates: start: 20130227
  2. BLINDED MABTHERA [Suspect]
     Indication: NON-HODGKIN^S LYMPHOMA
     Dosage: CODE NOT BROKEN
     Route: 042
     Dates: start: 20130227
  3. BLINDED NO TREATMENT RECEIVED [Suspect]
     Indication: NON-HODGKIN^S LYMPHOMA
     Dosage: CODE NOT BROKEN
     Route: 042
     Dates: start: 20130227
  4. BLINDED GP2013 [Suspect]
     Dosage: CODE NOT BROKEN
     Dates: start: 20130320
  5. BLINDED MABTHERA [Suspect]
     Dosage: CODE NOT BROKEN
     Dates: start: 20130320
  6. BLINDED NO TREATMENT RECEIVED [Suspect]
     Dosage: CODE NOT BROKEN
     Dates: start: 20130320
  7. PREDNISONE [Suspect]
     Indication: CHEMOTHERAPY
     Dosage: 100 MG/ DAY
     Route: 048
     Dates: start: 20130227
  8. PREDNISONE [Suspect]
     Dosage: UNK
     Dates: start: 20130320
  9. VINCRISTINE [Suspect]
     Indication: CHEMOTHERAPY
     Dosage: 829 MG, UNK
     Route: 042
     Dates: start: 20130227
  10. VINCRISTINE [Suspect]
     Dosage: UNK
     Dates: start: 20130320
  11. CYCLOPHOSPHAMIDE [Suspect]
     Indication: CHEMOTHERAPY
     Dosage: 1335 MG, UNK
     Route: 042
     Dates: start: 20130227
  12. CYCLOPHOSPHAMIDE [Suspect]
     Dosage: UNK
     Dates: start: 20130320
  13. VONAU [Concomitant]
     Indication: NAUSEA
     Dosage: 8 MG, QD
     Dates: start: 20130227
  14. ALLOPURINOL [Concomitant]
     Indication: PROPHYLAXIS
     Dosage: 100 MG, QD
     Dates: start: 20130131
  15. PLASIL [Concomitant]
     Indication: NAUSEA
     Dosage: 140 DROPS QD
     Dates: start: 20130227
  16. OMEPRAZOLE [Concomitant]
     Indication: NAUSEA
     Dosage: 20 MG, QD
     Dates: start: 20130227

REACTIONS (1)
  - Febrile neutropenia [Recovered/Resolved]
